FAERS Safety Report 9796598 (Version 1)
Quarter: 2014Q1

REPORT INFORMATION
  Report Type: Other
  Country: JP (occurrence: JP)
  Receive Date: 20140103
  Receipt Date: 20140103
  Transmission Date: 20141002
  Serious: Yes (Hospitalization)
  Sender: FDA-Public Use
  Company Number: JP-BRISTOL-MYERS SQUIBB COMPANY-19951359

PATIENT
  Sex: Male

DRUGS (4)
  1. BRIPLATIN [Suspect]
     Indication: OSTEOSARCOMA
  2. VEPESID [Suspect]
     Indication: OSTEOSARCOMA
  3. DOXORUBICIN [Suspect]
     Indication: OSTEOSARCOMA
  4. CYCLOPHOSPHAMIDE [Suspect]
     Indication: OSTEOSARCOMA

REACTIONS (1)
  - Papillary thyroid cancer [Unknown]
